FAERS Safety Report 17069797 (Version 1)
Quarter: 2019Q4

REPORT INFORMATION
  Report Type: Spontaneous
  Country: IL (occurrence: US)
  Receive Date: 20191125
  Receipt Date: 20191125
  Transmission Date: 20200122
  Serious: No
  Sender: FDA-Public Use
  Company Number: IL-ALLERGAN-1900952US

PATIENT
  Sex: Female

DRUGS (2)
  1. DARIFENACIN - BP [Suspect]
     Active Substance: DARIFENACIN
     Indication: POLLAKIURIA
  2. DARIFENACIN - BP [Suspect]
     Active Substance: DARIFENACIN
     Indication: MICTURITION URGENCY
     Route: 048

REACTIONS (1)
  - Drug ineffective [Unknown]
